FAERS Safety Report 19552985 (Version 3)
Quarter: 2021Q3

REPORT INFORMATION
  Report Type: Report from Study
  Country: US (occurrence: US)
  Receive Date: 20210715
  Receipt Date: 20210818
  Transmission Date: 20211014
  Serious: Yes (Death)
  Sender: FDA-Public Use
  Company Number: US-B.I. PHARMACEUTICALS,INC./RIDGEFIELD-2021-BI-115093

PATIENT
  Age: 86 Year
  Sex: Female
  Weight: 98 kg

DRUGS (1)
  1. AGGRENOX [Suspect]
     Active Substance: ASPIRIN\DIPYRIDAMOLE
     Indication: COVID-19
     Dosage: UNIT STRENGTH: DIPYRIDAMOLE ER 200MG/ ASPIRIN 25MG
     Route: 048

REACTIONS (2)
  - Hypoxia [Fatal]
  - COVID-19 [Fatal]

NARRATIVE: CASE EVENT DATE: 20210320
